FAERS Safety Report 16993720 (Version 2)
Quarter: 2019Q4

REPORT INFORMATION
  Report Type: Spontaneous
  Country: JP (occurrence: JP)
  Receive Date: 20191105
  Receipt Date: 20191110
  Transmission Date: 20200122
  Serious: Yes (Hospitalization)
  Sender: FDA-Public Use
  Company Number: JP-B.I. PHARMACEUTICALS,INC./RIDGEFIELD-2019-NB-111434

PATIENT
  Age: 56 Year
  Sex: Male

DRUGS (5)
  1. MAGNESIUM OXIDE. [Concomitant]
     Active Substance: MAGNESIUM OXIDE
     Indication: CONSTIPATION
     Route: 048
     Dates: end: 20191101
  2. DOMPERIDONE [Concomitant]
     Active Substance: DOMPERIDONE
     Indication: CHRONIC GASTRITIS
     Route: 048
     Dates: start: 20191020, end: 20191101
  3. MOBIC [Suspect]
     Active Substance: MELOXICAM
     Indication: HERNIA
     Route: 048
     Dates: start: 20191002, end: 20191007
  4. MELOXICAM. [Suspect]
     Active Substance: MELOXICAM
     Indication: HERNIA
     Route: 048
     Dates: start: 20191007, end: 20191101
  5. TRAMCET [Suspect]
     Active Substance: ACETAMINOPHEN\TRAMADOL
     Indication: HERNIA
     Route: 048
     Dates: start: 20191020, end: 20191101

REACTIONS (3)
  - Haemorrhage subcutaneous [Unknown]
  - Acute kidney injury [Unknown]
  - Thrombocytopenic purpura [Unknown]

NARRATIVE: CASE EVENT DATE: 20191101
